FAERS Safety Report 7755078-4 (Version None)
Quarter: 2011Q3

REPORT INFORMATION
  Report Type: 
  Country: None (occurrence: None)
  Receive Date: 20110916
  Receipt Date: 20110906
  Transmission Date: 20111222
  Serious: Yes (Hospitalization, Other)
  Sender: FDA-Public Use
  Company Number: US-ELI_LILLY_AND_COMPANY-US201105007931

PATIENT
  Sex: Female

DRUGS (6)
  1. CALCIUM CARBONATE [Concomitant]
  2. TRAZODONE HCL [Concomitant]
     Indication: SLEEP DISORDER
  3. VITAMIN D [Suspect]
  4. FORTEO [Suspect]
     Dosage: 20 UG, QD
     Route: 065
  5. FORTEO [Suspect]
     Dosage: 20 UG, QD
     Route: 065
  6. FORTEO [Suspect]
     Indication: OSTEOPOROSIS
     Dosage: 20 UG, QD
     Route: 065
     Dates: start: 20110401

REACTIONS (5)
  - MUSCLE SPASMS [None]
  - LOWER LIMB FRACTURE [None]
  - PAIN [None]
  - HIP ARTHROPLASTY [None]
  - ARTHRALGIA [None]
